FAERS Safety Report 9998149 (Version 5)
Quarter: 2015Q2

REPORT INFORMATION
  Report Type: Report from Study
  Country: US (occurrence: US)
  Receive Date: 20140311
  Receipt Date: 20150506
  Transmission Date: 20150821
  Serious: Yes (Other)
  Sender: FDA-Public Use
  Company Number: US-SA-2013SA131513

PATIENT
  Age: 60 Year
  Sex: Female

DRUGS (3)
  1. COPAXONE [Concomitant]
     Active Substance: GLATIRAMER ACETATE
     Indication: PRODUCT USED FOR UNKNOWN INDICATION
     Route: 065
  2. AUBAGIO [Suspect]
     Active Substance: TERIFLUNOMIDE
     Indication: MULTIPLE SCLEROSIS
     Route: 048
     Dates: start: 20121109
  3. SOLU-MEDROL [Concomitant]
     Active Substance: METHYLPREDNISOLONE SODIUM SUCCINATE
     Route: 042

REACTIONS (12)
  - Nail disorder [Unknown]
  - Speech disorder [Unknown]
  - Lower limb fracture [Unknown]
  - Nasopharyngitis [Unknown]
  - Mobility decreased [Unknown]
  - Impaired healing [Unknown]
  - Alopecia [Unknown]
  - Paralysis [Unknown]
  - Asthenia [Unknown]
  - Drug dose omission [Unknown]
  - Presyncope [Unknown]
  - Hair texture abnormal [Unknown]

NARRATIVE: CASE EVENT DATE: 201308
